FAERS Safety Report 9344211 (Version 3)
Quarter: 2013Q3

REPORT INFORMATION
  Report Type: Spontaneous
  Country: US (occurrence: None)
  Receive Date: 20130610
  Receipt Date: 20130913
  Transmission Date: 20140515
  Serious: Yes (Other)
  Sender: FDA-Public Use
  Company Number: ACO_36584_2013

PATIENT
  Age: 52 Year
  Sex: Female

DRUGS (8)
  1. AMPYRA (DALFAMPRIDINE) TABLET, 10MG [Suspect]
     Indication: PRODUCT USED FOR UNKNOWN INDICATION
     Dates: start: 20121204, end: 20130529
  2. CALCIUM (CALCIUM) [Concomitant]
  3. LABETALOL (LABETALOL HYDROCHLORIDE) [Concomitant]
  4. AMANTADINE (AMANTADINE HYDROCHLORIDE) [Concomitant]
  5. PRAVASTATIN (PRAVASTATIN SODIUM) [Concomitant]
  6. BACLOFEN (BACLOFEN) [Concomitant]
  7. REBIF (INTERFERON BETA -1A) [Concomitant]
  8. PAXIL (PAROXETINE HYDROCHLORIDE) [Concomitant]

REACTIONS (1)
  - Convulsion [None]
